FAERS Safety Report 6817923-6 (Version None)
Quarter: 2010Q3

REPORT INFORMATION
  Report Type: 
  Country: None (occurrence: None)
  Receive Date: 20100706
  Receipt Date: 20100625
  Transmission Date: 20110219
  Serious: Yes (Other)
  Sender: FDA-Public Use
  Company Number: CA-BAYER-201022089NA

PATIENT
  Age: 58 Year
  Sex: Male
  Weight: 215 kg

DRUGS (3)
  1. CIPRO [Suspect]
     Indication: PROSTATITIS
     Dosage: TOTAL DAILY DOSE: 1000 MG  UNIT DOSE: 500 MG
     Route: 048
  2. ADALAT [Concomitant]
     Indication: HYPERTENSION
     Dates: start: 20070101
  3. DIOVAN [Concomitant]
     Indication: HYPERTENSION

REACTIONS (9)
  - ABDOMINAL DISTENSION [None]
  - ASTHENIA [None]
  - CONDITION AGGRAVATED [None]
  - DECREASED APPETITE [None]
  - HYPERTENSION [None]
  - MALAISE [None]
  - NAUSEA [None]
  - PROSTATITIS [None]
  - UNEVALUABLE EVENT [None]
